FAERS Safety Report 16004118 (Version 4)
Quarter: 2019Q1

REPORT INFORMATION
  Report Type: Spontaneous
  Country: BG (occurrence: BG)
  Receive Date: 20190226
  Receipt Date: 20190311
  Transmission Date: 20190418
  Serious: Yes (Life-Threatening, Hospitalization, Other)
  Sender: FDA-Public Use
  Company Number: BG-SA-2019SA049763

PATIENT
  Age: 45 Year
  Sex: Male

DRUGS (2)
  1. ACETYLSALICYLIC ACID [Suspect]
     Active Substance: ASPIRIN
     Indication: HYPERTENSION
     Dosage: 100 MG, AT NIGHT
     Route: 065
  2. HYDROCHLOROTHIAZIDE/IRBESARTAN [Suspect]
     Active Substance: HYDROCHLOROTHIAZIDE\IRBESARTAN
     Indication: HYPERTENSION
     Dosage: 150 MG/12.5 MG  QD
     Route: 065

REACTIONS (3)
  - Malignant melanoma stage I [Recovered/Resolved]
  - Malignant melanoma [Recovered/Resolved]
  - Psoriasis [Unknown]

NARRATIVE: CASE EVENT DATE: 2018
